FAERS Safety Report 5849202-8 (Version None)
Quarter: 2008Q3

REPORT INFORMATION
  Report Type: 
  Country: None (occurrence: None)
  Receive Date: 20080818
  Receipt Date: 20080818
  Transmission Date: 20090109
  Serious: No
  Sender: FDA-Public Use
  Company Number: None

PATIENT
  Sex: Female
  Weight: 56.6996 kg

DRUGS (1)
  1. ZOCOR [Suspect]
     Indication: HYPERCHOLESTEROLAEMIA
     Dosage: QD PO
     Route: 048
     Dates: start: 20060115, end: 20060930

REACTIONS (2)
  - CONDITION AGGRAVATED [None]
  - FIBROMYALGIA [None]
